FAERS Safety Report 11315585 (Version 1)
Quarter: 2015Q3

REPORT INFORMATION
  Report Type: Report from Study
  Country: US (occurrence: US)
  Receive Date: 20150728
  Receipt Date: 20150728
  Transmission Date: 20151125
  Serious: No
  Sender: FDA-Public Use
  Company Number: PHEH2015US014424

PATIENT
  Sex: Female

DRUGS (1)
  1. FARYDAK [Suspect]
     Active Substance: PANOBINOSTAT
     Indication: PLASMA CELL MYELOMA
     Dosage: 20 MG, QOD (DAY 1, 3, 5, 8, 10 AND 12 EVERY 21 DAYS)
     Route: 048
     Dates: start: 20150708

REACTIONS (1)
  - Diarrhoea [Recovered/Resolved]
